FAERS Safety Report 17807630 (Version 2)
Quarter: 2020Q3

REPORT INFORMATION
  Report Type: Report from Study
  Country: US (occurrence: US)
  Receive Date: 20200520
  Receipt Date: 20200812
  Transmission Date: 20201102
  Serious: No
  Sender: FDA-Public Use
  Company Number: US-SA-2020SA027778

PATIENT

DRUGS (2)
  1. ELIGLUSTAT. [Suspect]
     Active Substance: ELIGLUSTAT
     Indication: GAUCHER^S DISEASE
     Dosage: 84 MG, BID
     Route: 048
     Dates: start: 20170607
  2. ELIGLUSTAT. [Suspect]
     Active Substance: ELIGLUSTAT
     Dosage: 84 MG, Q12H
     Route: 048
     Dates: start: 20200602

REACTIONS (2)
  - Product dose omission issue [Unknown]
  - Surgery [Not Recovered/Not Resolved]

NARRATIVE: CASE EVENT DATE: 20200806
